FAERS Safety Report 9469921 (Version 2)
Quarter: 2016Q2

REPORT INFORMATION
  Report Type: Report from Study
  Country: US (occurrence: US)
  Receive Date: 20130822
  Receipt Date: 20160422
  Transmission Date: 20160815
  Serious: Yes (Death)
  Sender: FDA-Public Use
  Company Number: US-ROCHE-1265151

PATIENT
  Age: 52 Year
  Sex: Female

DRUGS (17)
  1. AVASTIN [Suspect]
     Active Substance: BEVACIZUMAB
     Indication: COLON CANCER METASTATIC
     Route: 042
     Dates: start: 20120113
  2. 5-FU [Concomitant]
     Active Substance: FLUOROURACIL
     Route: 042
  3. 5-FU [Concomitant]
     Active Substance: FLUOROURACIL
     Route: 042
  4. ATIVAN [Concomitant]
     Active Substance: LORAZEPAM
     Route: 042
  5. AVASTIN [Suspect]
     Active Substance: BEVACIZUMAB
     Indication: ADENOCARCINOMA OF COLON
     Route: 042
  6. 5-FU [Concomitant]
     Active Substance: FLUOROURACIL
     Route: 042
  7. PALONOSETRON [Concomitant]
     Active Substance: PALONOSETRON
     Route: 042
  8. LIDOCAINE. [Concomitant]
     Active Substance: LIDOCAINE
     Route: 058
  9. FOSAPREPITANT [Concomitant]
     Active Substance: FOSAPREPITANT
     Indication: PROPHYLAXIS
     Route: 042
  10. LEUCOVORIN. [Concomitant]
     Active Substance: LEUCOVORIN
     Route: 065
  11. ELOXATIN [Concomitant]
     Active Substance: OXALIPLATIN
     Route: 042
  12. BENADRYL [Concomitant]
     Active Substance: DIPHENHYDRAMINE HYDROCHLORIDE
     Route: 042
  13. LEUCOVORIN. [Concomitant]
     Active Substance: LEUCOVORIN
     Route: 042
  14. FASLODEX [Concomitant]
     Active Substance: FULVESTRANT
     Route: 030
  15. TRELSTAR [Concomitant]
     Active Substance: TRIPTORELIN PAMOATE
     Route: 030
  16. DECADRON [Concomitant]
     Active Substance: DEXAMETHASONE
     Route: 042
  17. FLUOXETINE [Concomitant]
     Active Substance: FLUOXETINE HYDROCHLORIDE

REACTIONS (13)
  - Abdominal discomfort [Unknown]
  - Constipation [Unknown]
  - Nausea [Unknown]
  - Wound [Unknown]
  - Anxiety [Unknown]
  - Asthenia [Unknown]
  - Diarrhoea [Unknown]
  - Burning sensation [Unknown]
  - Hypoaesthesia [Unknown]
  - Disease progression [Fatal]
  - Depressive symptom [Unknown]
  - Fatigue [Unknown]
  - Polyneuropathy [Unknown]

NARRATIVE: CASE EVENT DATE: 20120214
